FAERS Safety Report 6682642-6 (Version None)
Quarter: 2010Q2

REPORT INFORMATION
  Report Type: 
  Country: None (occurrence: None)
  Receive Date: 20100415
  Receipt Date: 20100405
  Transmission Date: 20101027
  Serious: Yes (Other)
  Sender: FDA-Public Use
  Company Number: US-PFIZER INC-2010043018

PATIENT
  Sex: Female
  Weight: 70.295 kg

DRUGS (6)
  1. SUTENT [Suspect]
     Indication: METASTATIC NEOPLASM
     Dosage: 37.5 MG, 1X/DAY
     Route: 048
  2. SIMVASTATIN [Concomitant]
     Indication: BLOOD CHOLESTEROL ABNORMAL
     Dosage: 40 MG, 1X/DAY
     Route: 048
  3. VITAMIN C [Concomitant]
     Dosage: UNK
  4. LYSINE [Concomitant]
     Indication: STOMATITIS
     Dosage: 500 MG, UNK
  5. LISINOPRIL [Concomitant]
     Indication: HYPERTENSION
     Dosage: 20 MG, 1X/DAY
  6. ZOLPIDEM [Concomitant]
     Indication: SLEEP DISORDER
     Dosage: DAILY

REACTIONS (2)
  - LUNG NEOPLASM [None]
  - SINUSITIS [None]
